FAERS Safety Report 6075550-5 (Version None)
Quarter: 2009Q1

REPORT INFORMATION
  Report Type: 
  Country: None (occurrence: None)
  Receive Date: 20090210
  Receipt Date: 20090210
  Transmission Date: 20090719
  Serious: Yes (Life-Threatening, Other)
  Sender: FDA-Public Use
  Company Number: None

PATIENT
  Sex: Female

DRUGS (2)
  1. PROAIR HFA [Suspect]
     Indication: INHALATION THERAPY
  2. PROVENTIL-HFA [Suspect]

REACTIONS (6)
  - CHEST DISCOMFORT [None]
  - CONDITION AGGRAVATED [None]
  - DYSPNOEA [None]
  - HEADACHE [None]
  - PRODUCT QUALITY ISSUE [None]
  - THERAPEUTIC RESPONSE UNEXPECTED WITH DRUG SUBSTITUTION [None]
